FAERS Safety Report 4853806-9 (Version None)
Quarter: 2005Q4

REPORT INFORMATION
  Report Type: 
  Country: None (occurrence: None)
  Receive Date: 20051212
  Receipt Date: 20051130
  Transmission Date: 20060501
  Serious: Yes (Other)
  Sender: FDA-Public Use
  Company Number: 2005163352

PATIENT
  Age: 63 Year
  Sex: Female
  Weight: 54.4316 kg

DRUGS (10)
  1. VFEND [Suspect]
     Indication: EYE INFECTION FUNGAL
     Dosage: 800 MG (400 MG, BID), ORAL
     Route: 048
     Dates: start: 20051124
  2. HYDROCHLOROTHIAZIDE [Concomitant]
  3. VANCOMYCIN [Concomitant]
  4. TOBRAMYCIN [Concomitant]
  5. AMPHOTERICIN B [Concomitant]
  6. HYDROCODONE BITARTRATE [Concomitant]
  7. DARVOCET-N 100 [Concomitant]
  8. HYDROCORTISONE [Concomitant]
  9. GATIFLOXACIN [Concomitant]
  10. MULTIVITAMIN [Concomitant]

REACTIONS (6)
  - CONFUSIONAL STATE [None]
  - DIZZINESS [None]
  - DYSGRAPHIA [None]
  - HALLUCINATION, VISUAL [None]
  - HEADACHE [None]
  - MOTOR DYSFUNCTION [None]
